FAERS Safety Report 22394050 (Version 2)
Quarter: 2023Q2

REPORT INFORMATION
  Report Type: Spontaneous
  Country: JP (occurrence: JP)
  Receive Date: 20230601
  Receipt Date: 20230622
  Transmission Date: 20230722
  Serious: No
  Sender: FDA-Public Use
  Company Number: JP-MH-2023M1055174AA

PATIENT
  Age: 78 Year
  Sex: Female
  Weight: 35.2 kg

DRUGS (2)
  1. PREGABALIN [Suspect]
     Active Substance: PREGABALIN
     Indication: Neuralgia
     Dosage: 150MG/DAY, 4WEEKS
     Route: 065
  2. HERBALS [Concomitant]
     Active Substance: HERBALS
     Indication: Neuralgia
     Dosage: UNK
     Route: 065

REACTIONS (1)
  - Somnolence [Unknown]
